FAERS Safety Report 12349295 (Version 1)
Quarter: 2016Q2

REPORT INFORMATION
  Report Type: Spontaneous
  Country: GB (occurrence: GB)
  Receive Date: 20160509
  Receipt Date: 20160509
  Transmission Date: 20160815
  Serious: Yes (Hospitalization)
  Sender: FDA-Public Use
  Company Number: GB-TEVA-658078ACC

PATIENT
  Age: 67 Year
  Sex: Male

DRUGS (12)
  1. FOLIC ACID. [Concomitant]
     Active Substance: FOLIC ACID
     Dosage: 5 MILLIGRAM DAILY; MORNING
  2. FUROSEMIDE. [Concomitant]
     Active Substance: FUROSEMIDE
     Dosage: 40 MILLIGRAM DAILY; MORNING
  3. FENOFIBRATE. [Interacting]
     Active Substance: FENOFIBRATE
     Dosage: 160 MILLIGRAM DAILY; AT NIGHT
  4. NOVORAPID [Concomitant]
     Active Substance: INSULIN ASPART
     Dosage: 32 UNITS AT BREAKFAST + LUNCH 38UNITS WITH DINNER
  5. COCODAMOL [Concomitant]
     Active Substance: ACETAMINOPHEN\CODEINE PHOSPHATE
     Dosage: 30/500 1-2 FOUR TIMES A DAY WHEN REQUIRED
  6. ALLOPURINOL. [Concomitant]
     Active Substance: ALLOPURINOL
     Dosage: 300 MILLIGRAM DAILY;
  7. AMITRIPTYLINE [Concomitant]
     Active Substance: AMITRIPTYLINE
     Dosage: 1-2 AT NIGHT
  8. LANTUS [Concomitant]
     Active Substance: INSULIN GLARGINE
     Dosage: 88 IU (INTERNATIONAL UNIT) DAILY; AT NIGHT
  9. METFORMIN [Concomitant]
     Active Substance: METFORMIN HYDROCHLORIDE
     Dosage: 1000 MILLIGRAM DAILY;
  10. RUXOLITINIB [Interacting]
     Active Substance: RUXOLITINIB
     Dosage: 10 MILLIGRAM DAILY;
  11. CLARITHROMYCIN. [Suspect]
     Active Substance: CLARITHROMYCIN
     Indication: CELLULITIS
     Dosage: 1000 MILLIGRAM DAILY;
     Route: 048
     Dates: start: 20160406, end: 20160408
  12. CARVEDILOL. [Concomitant]
     Active Substance: CARVEDILOL
     Dosage: 12.5 MILLIGRAM DAILY;

REACTIONS (2)
  - Feeling abnormal [Recovering/Resolving]
  - Labelled drug-drug interaction medication error [Unknown]

NARRATIVE: CASE EVENT DATE: 20160406
